FAERS Safety Report 21344646 (Version 1)
Quarter: 2022Q3

REPORT INFORMATION
  Report Type: Spontaneous
  Country: US (occurrence: DE)
  Receive Date: 20220916
  Receipt Date: 20220916
  Transmission Date: 20221026
  Serious: Yes (Other)
  Sender: FDA-Public Use
  Company Number: US-009507513-2209USA004589

PATIENT
  Age: 50 Year

DRUGS (2)
  1. KEYTRUDA [Suspect]
     Active Substance: PEMBROLIZUMAB
     Indication: Oesophageal squamous cell carcinoma
     Dosage: 200 MILLIGRAM, EVERY 3 WEEKS
     Dates: start: 202108
  2. FLUOROURACIL\LEUCOVORIN CALCIUM\OXALIPLATIN [Suspect]
     Active Substance: FLUOROURACIL\LEUCOVORIN CALCIUM\OXALIPLATIN
     Indication: Oesophageal squamous cell carcinoma
     Dosage: UNK
     Dates: start: 202108, end: 202203

REACTIONS (6)
  - Metastases to bone [Unknown]
  - Paraneoplastic pemphigus [Unknown]
  - Autoimmune thyroid disorder [Unknown]
  - Depressed mood [Not Recovered/Not Resolved]
  - Orthostatic hypotension [Unknown]
  - Hyperhidrosis [Unknown]

NARRATIVE: CASE EVENT DATE: 20210101
